APPROVED DRUG PRODUCT: BUTALBITAL, ACETAMINOPHEN AND CAFFEINE
Active Ingredient: ACETAMINOPHEN; BUTALBITAL; CAFFEINE
Strength: 500MG;50MG;40MG
Dosage Form/Route: TABLET;ORAL
Application: A040394 | Product #001
Applicant: ABLE LABORATORIES INC
Approved: Jul 23, 2001 | RLD: No | RS: No | Type: DISCN